FAERS Safety Report 8499113 (Version 3)
Quarter: 2015Q2

REPORT INFORMATION
  Report Type: Report from Study
  Country: JP (occurrence: JP)
  Receive Date: 20120409
  Receipt Date: 20150602
  Transmission Date: 20150821
  Serious: Yes (Other)
  Sender: FDA-Public Use
  Company Number: PHHY2011JP099715

PATIENT
  Age: 47 Year
  Sex: Female
  Weight: 75 kg

DRUGS (33)
  1. CLOZARIL [Suspect]
     Active Substance: CLOZAPINE
     Dosage: 50 MG, QD
     Route: 048
     Dates: start: 20110519, end: 20110520
  2. CLOZARIL [Suspect]
     Active Substance: CLOZAPINE
     Dosage: 200 MG, QD
     Route: 048
     Dates: start: 20110606, end: 20110626
  3. CLOZARIL [Suspect]
     Active Substance: CLOZAPINE
     Dosage: 300 MG, QD
     Route: 048
     Dates: start: 20110627, end: 20110725
  4. CLOZARIL [Suspect]
     Active Substance: CLOZAPINE
     Dosage: 500 MG, QD
     Route: 048
     Dates: start: 20110824, end: 20110906
  5. ROHYPNOL [Concomitant]
     Active Substance: FLUNITRAZEPAM
     Dosage: 2 MG, QD
     Route: 048
     Dates: start: 20110824, end: 20111025
  6. CLOZARIL [Suspect]
     Active Substance: CLOZAPINE
     Dosage: 150 MG, QD
     Route: 048
     Dates: start: 20110531, end: 20110602
  7. CLOZARIL [Suspect]
     Active Substance: CLOZAPINE
     Dosage: 300 MG, QD
     Route: 048
     Dates: start: 20120222
  8. CLOZARIL [Suspect]
     Active Substance: CLOZAPINE
     Indication: SCHIZOPHRENIA, PARANOID TYPE
     Dosage: 12.5 MG, QD
     Route: 048
     Dates: start: 20110517, end: 20110517
  9. CLOZARIL [Suspect]
     Active Substance: CLOZAPINE
     Dosage: 400 MG, QD
     Route: 048
     Dates: start: 20110726, end: 20110823
  10. CLOZARIL [Suspect]
     Active Substance: CLOZAPINE
     Dosage: 150 MG, QD
     Route: 048
     Dates: start: 20111121, end: 20111123
  11. CLOZARIL [Suspect]
     Active Substance: CLOZAPINE
     Dosage: 250 MG, QD
     Route: 048
     Dates: start: 20120118, end: 20120221
  12. LENDORMIN [Concomitant]
     Active Substance: BROTIZOLAM
     Dosage: 0.25 MG, QD
     Route: 048
     Dates: start: 20110824, end: 20111103
  13. CLOZARIL [Suspect]
     Active Substance: CLOZAPINE
     Dosage: 75 MG, QD
     Route: 048
     Dates: start: 20110521, end: 20110525
  14. CLOZARIL [Suspect]
     Active Substance: CLOZAPINE
     Dosage: 100 MG, QD
     Route: 048
     Dates: start: 20110526, end: 20110527
  15. CLOZARIL [Suspect]
     Active Substance: CLOZAPINE
     Dosage: 300 MG, QD
     Route: 048
     Dates: start: 20110921, end: 20111104
  16. CLOZARIL [Suspect]
     Active Substance: CLOZAPINE
     Dosage: 75 MG, QD
     Route: 048
     Dates: start: 20111115, end: 20111115
  17. CLOZARIL [Suspect]
     Active Substance: CLOZAPINE
     Dosage: 100 MG, QD
     Route: 048
     Dates: start: 20111116, end: 20111117
  18. CLOZARIL [Suspect]
     Active Substance: CLOZAPINE
     Dosage: 175 MG, QD
     Route: 048
     Dates: start: 20111124, end: 20111126
  19. CLOZARIL [Suspect]
     Active Substance: CLOZAPINE
     Dosage: 200 MG, QD
     Route: 048
     Dates: start: 20111127, end: 20120103
  20. CLOZARIL [Suspect]
     Active Substance: CLOZAPINE
     Dosage: 25 MG, QD
     Route: 048
     Dates: start: 20110518, end: 20110518
  21. CLOZARIL [Suspect]
     Active Substance: CLOZAPINE
     Dosage: 225 MG, QD
     Route: 048
     Dates: start: 20120104, end: 20120117
  22. HANGE-SHASHIN-TO [Concomitant]
     Active Substance: HERBALS
     Indication: SCHIZOPHRENIA, PARANOID TYPE
     Dosage: 7.5 MG, QD
     Route: 048
     Dates: start: 20110909, end: 20111018
  23. CLOZARIL [Suspect]
     Active Substance: CLOZAPINE
     Dosage: 125 MG, QD
     Route: 048
     Dates: start: 20110528, end: 20110530
  24. CLOZARIL [Suspect]
     Active Substance: CLOZAPINE
     Dosage: 50 MG, QD
     Route: 048
     Dates: start: 20111112, end: 20111114
  25. CLOZARIL [Suspect]
     Active Substance: CLOZAPINE
     Dosage: 125 MG, QD
     Route: 048
     Dates: start: 20111118, end: 20111120
  26. ROHYPNOL [Concomitant]
     Active Substance: FLUNITRAZEPAM
     Indication: SCHIZOPHRENIA, PARANOID TYPE
     Dosage: 2 MG, QD
     Route: 048
     Dates: start: 20110517
  27. CLOZARIL [Suspect]
     Active Substance: CLOZAPINE
     Dosage: 175 MG, QD
     Route: 048
     Dates: start: 20110603, end: 20110605
  28. CLOZARIL [Suspect]
     Active Substance: CLOZAPINE
     Dosage: 25 MG, QD
     Route: 048
     Dates: start: 20111109, end: 20111111
  29. LEVOTOMIN [Concomitant]
     Active Substance: LEVOMEPROMAZINE
     Indication: SCHIZOPHRENIA, PARANOID TYPE
     Dosage: 75 MG, QD
     Route: 048
     Dates: start: 20110826, end: 20110826
  30. MIYA-BM [Concomitant]
     Active Substance: CLOSTRIDIUM BUTYRICUM SPORES STRAIN M-55
     Indication: CREATORRHOEA
     Dosage: 3 MG, QD
     Route: 048
     Dates: start: 20110906, end: 20111103
  31. CLOZARIL [Suspect]
     Active Substance: CLOZAPINE
     Dosage: 400 MG, QD
     Route: 048
     Dates: start: 20110907, end: 20110920
  32. CLOZARIL [Suspect]
     Active Substance: CLOZAPINE
     Dosage: 12.5 MG, QD
     Route: 048
     Dates: start: 20111108, end: 20111108
  33. LENDORMIN [Concomitant]
     Active Substance: BROTIZOLAM
     Indication: INSOMNIA
     Dosage: 0.25 MG, QD
     Route: 048
     Dates: start: 20110517

REACTIONS (10)
  - Salivary hypersecretion [Recovering/Resolving]
  - Haemoglobin decreased [Not Recovered/Not Resolved]
  - Myoclonus [Recovered/Resolved]
  - Malaise [Recovered/Resolved]
  - Depressed level of consciousness [Unknown]
  - Sedation [Recovered/Resolved]
  - Hepatic function abnormal [Recovered/Resolved]
  - Creatorrhoea [Recovered/Resolved]
  - Fatigue [Unknown]
  - Blood pressure increased [Unknown]

NARRATIVE: CASE EVENT DATE: 20110519
